FAERS Safety Report 7493095-2 (Version None)
Quarter: 2011Q2

REPORT INFORMATION
  Report Type: 
  Country: None (occurrence: None)
  Receive Date: 20110519
  Receipt Date: 20110519
  Transmission Date: 20111010
  Serious: Yes (Other)
  Sender: FDA-Public Use
  Company Number: None

PATIENT
  Age: 56 Year
  Sex: Female
  Weight: 99.7913 kg

DRUGS (1)
  1. ATACAND HCT [Suspect]
     Indication: HYPERTENSION
     Dosage: BID PO
     Route: 048
     Dates: start: 20110513, end: 20110518

REACTIONS (4)
  - DIZZINESS [None]
  - DYSPNOEA [None]
  - PULSE PRESSURE INCREASED [None]
  - TACHYCARDIA [None]
